FAERS Safety Report 4783401-1 (Version None)
Quarter: 2005Q3

REPORT INFORMATION
  Report Type: 
  Country: None (occurrence: None)
  Receive Date: 20050928
  Receipt Date: 20050928
  Transmission Date: 20060218
  Serious: Yes (Other)
  Sender: FDA-Public Use
  Company Number: None

PATIENT
  Age: 60 Year
  Sex: Male
  Weight: 86.1834 kg

DRUGS (1)
  1. NIASPAN [Suspect]
     Indication: DYSLIPIDAEMIA
     Dosage: 2 TABLET DAILY

REACTIONS (1)
  - FLUSHING [None]
